FAERS Safety Report 5661617-X (Version None)
Quarter: 2008Q1

REPORT INFORMATION
  Report Type: 
  Country: None (occurrence: None)
  Receive Date: 20080312
  Receipt Date: 20080303
  Transmission Date: 20080703
  Serious: Yes (Hospitalization, Other)
  Sender: FDA-Public Use
  Company Number: PHHY2008JP00694

PATIENT
  Age: 68 Year
  Sex: Female
  Weight: 64 kg

DRUGS (6)
  1. MAINTATE [Concomitant]
     Indication: HYPERTENSION
     Dosage: 2.5 MG/DAY
     Route: 048
     Dates: start: 20050601
  2. FLUVASTATIN [Suspect]
     Indication: LIPIDS ABNORMAL
     Dosage: 30MG/DAY
     Route: 048
     Dates: start: 20050725, end: 20080208
  3. NORVASC [Suspect]
     Indication: HYPERTENSION
     Dosage: 5MG/DAY
     Route: 048
     Dates: start: 20050601, end: 20080208
  4. ASPIRIN [Concomitant]
     Indication: LACUNAR INFARCTION
     Dosage: 100MG/DAY
     Route: 048
     Dates: start: 20060912, end: 20080104
  5. DIOVAN [Suspect]
     Indication: HYPERTENSION
     Dosage: 160 MG/DAY
     Route: 048
     Dates: start: 20050601
  6. DEPAS [Suspect]
     Dosage: 1 MG/DAY
     Route: 048
     Dates: start: 20050601, end: 20080208

REACTIONS (9)
  - ANTI-PLATELET ANTIBODY POSITIVE [None]
  - BLEEDING TIME PROLONGED [None]
  - BLOOD PRESSURE INCREASED [None]
  - EPISTAXIS [None]
  - HAEMOPTYSIS [None]
  - HAEMORRHAGE SUBCUTANEOUS [None]
  - MEGAKARYOCYTES DECREASED [None]
  - PLATELET COUNT DECREASED [None]
  - THROMBOCYTOPENIA [None]
